FAERS Safety Report 22538596 (Version 1)
Quarter: 2023Q2

REPORT INFORMATION
  Report Type: Spontaneous
  Country: US (occurrence: US)
  Receive Date: 20230609
  Receipt Date: 20230609
  Transmission Date: 20230722
  Serious: No
  Sender: FDA-Public Use
  Company Number: US-JNJFOC-20230573191

PATIENT
  Age: 53 Year
  Sex: Female
  Weight: 112.14 kg

DRUGS (15)
  1. STELARA [Suspect]
     Active Substance: USTEKINUMAB
     Indication: Crohn^s disease
     Route: 058
  2. STELARA [Suspect]
     Active Substance: USTEKINUMAB
  3. CLARITIN [Concomitant]
     Active Substance: LORATADINE
     Indication: Hypersensitivity
  4. OMEPRAZOLE [Concomitant]
     Active Substance: OMEPRAZOLE
  5. FERROUS GLUCONATE [Concomitant]
     Active Substance: FERROUS GLUCONATE
  6. GABAPENTIN [Concomitant]
     Active Substance: GABAPENTIN
  7. LISINOPRIL [Concomitant]
     Active Substance: LISINOPRIL
  8. DICYCLOMINE [Concomitant]
     Active Substance: DICYCLOMINE HYDROCHLORIDE
  9. MESALAMINE [Concomitant]
     Active Substance: MESALAMINE
  10. CALCIUM CITRATE;COLECALCIFEROL [Concomitant]
     Indication: Osteoporosis
  11. VITAMIN B12 [Concomitant]
     Active Substance: CYANOCOBALAMIN
  12. MELATONIN [Concomitant]
     Active Substance: MELATONIN
  13. VITAMIN D3 [Concomitant]
     Active Substance: CHOLECALCIFEROL
  14. ACETAMINOPHEN\HYDROCODONE [Concomitant]
     Active Substance: ACETAMINOPHEN\HYDROCODONE
     Dosage: 5/325 MG
  15. TYLENOL [Concomitant]
     Active Substance: ACETAMINOPHEN
     Indication: Arthritis

REACTIONS (5)
  - Tendon injury [Unknown]
  - Syringe issue [Unknown]
  - Product dose omission issue [Unknown]
  - Nervousness [Unknown]
  - Medication error [Unknown]

NARRATIVE: CASE EVENT DATE: 20230101
